FAERS Safety Report 12170416 (Version 2)
Quarter: 2017Q1

REPORT INFORMATION
  Report Type: Spontaneous
  Country: US (occurrence: US)
  Receive Date: 20160311
  Receipt Date: 20170314
  Transmission Date: 20170428
  Serious: No
  Sender: FDA-Public Use
  Company Number: US-DRREDDYS-USA/USA/15/0054945

PATIENT
  Sex: Male
  Weight: 90.7 kg

DRUGS (1)
  1. CLOPIDOGREL BISULFATE 75 MG [Suspect]
     Active Substance: CLOPIDOGREL BISULFATE
     Indication: HAEMORRHAGE PROPHYLAXIS
     Route: 048
     Dates: start: 20140107

REACTIONS (2)
  - Urticaria [Unknown]
  - Pruritus [Not Recovered/Not Resolved]
